FAERS Safety Report 4912980-6 (Version None)
Quarter: 2006Q1

REPORT INFORMATION
  Report Type: 
  Country: None (occurrence: None)
  Receive Date: 20060210
  Receipt Date: 20060127
  Transmission Date: 20060701
  Serious: Yes (Other)
  Sender: FDA-Public Use
  Company Number: FACT0600043

PATIENT
  Age: 49 Year
  Sex: Female
  Weight: 56.7 kg

DRUGS (3)
  1. FACTIVE [Suspect]
     Indication: RESPIRATORY TRACT INFECTION BACTERIAL
     Dosage: 320 MG, QD, ORAL
     Route: 048
     Dates: start: 20060125, end: 20060125
  2. CENTRUM (MINERALS NOS, VITAMINS NOS) CHEWABLE TABLET [Concomitant]
  3. PANDEL/GFR/(HYDROCORTISONE PROBUTAT) CREAM [Concomitant]

REACTIONS (9)
  - ALLERGY TO CHEMICALS [None]
  - COUGH [None]
  - DIZZINESS [None]
  - DYSPNOEA [None]
  - FATIGUE [None]
  - HYPERSENSITIVITY [None]
  - LATEX ALLERGY [None]
  - NAUSEA [None]
  - VOMITING [None]
